FAERS Safety Report 9678004 (Version 1)
Quarter: 2013Q4

REPORT INFORMATION
  Report Type: Spontaneous
  Country: US (occurrence: US)
  Receive Date: 20131108
  Receipt Date: 20131108
  Transmission Date: 20140711
  Serious: Yes (Hospitalization)
  Sender: FDA-Public Use
  Company Number: US-BAYER-2013-135140

PATIENT
  Age: 35 Year
  Sex: Female
  Weight: 70 kg

DRUGS (6)
  1. YAZ [Suspect]
     Dosage: UNK
  2. YASMIN [Suspect]
  3. SYNTHROID [Concomitant]
     Dosage: 0.25 MG, QD
  4. DARVOCET [Concomitant]
     Route: 048
  5. ZOLOFT [Concomitant]
     Dosage: 25 MG, QD
     Route: 048
  6. MOBIC [Concomitant]

REACTIONS (3)
  - Pulmonary embolism [None]
  - Deep vein thrombosis [None]
  - Thrombophlebitis superficial [None]
